FAERS Safety Report 6990506-3 (Version None)
Quarter: 2010Q3

REPORT INFORMATION
  Report Type: 
  Country: None (occurrence: None)
  Receive Date: 20100916
  Receipt Date: 20100712
  Transmission Date: 20110219
  Serious: Yes (Life-Threatening, Other)
  Sender: FDA-Public Use
  Company Number: CA-PFIZER INC-2008048040

PATIENT
  Sex: Male
  Weight: 90.7 kg

DRUGS (1)
  1. LYRICA [Suspect]
     Indication: PAIN
     Dosage: 25 MG, 3X/DAY
     Route: 048
     Dates: start: 20080412, end: 20080101

REACTIONS (3)
  - FEELINGS OF WORTHLESSNESS [None]
  - SELF ESTEEM DECREASED [None]
  - SUICIDAL IDEATION [None]
